FAERS Safety Report 11204986 (Version 1)
Quarter: 2015Q2

REPORT INFORMATION
  Report Type: Spontaneous
  Country: US (occurrence: None)
  Receive Date: 20150618
  Receipt Date: 20150618
  Transmission Date: 20150821
  Serious: Yes (Hospitalization)
  Sender: FDA-Public Use
  Company Number: None

PATIENT
  Age: 55 Year
  Sex: Male
  Weight: 76.7 kg

DRUGS (13)
  1. CALCITRIOL. [Concomitant]
     Active Substance: CALCITRIOL
  2. PAROXETINE HCL [Concomitant]
     Active Substance: PAROXETINE HYDROCHLORIDE
  3. TRAMADOL HCL [Concomitant]
     Active Substance: TRAMADOL HYDROCHLORIDE
  4. LEVOFLOXACIN. [Concomitant]
     Active Substance: LEVOFLOXACIN
  5. ASPIRIN. [Concomitant]
     Active Substance: ASPIRIN
  6. REVLIMID [Concomitant]
     Active Substance: LENALIDOMIDE
  7. ACYCLOVIR (ZOVIRAX) [Concomitant]
  8. VITAMIN B COMPLEX [Concomitant]
     Active Substance: CYANOCOBALAMIN\DEXPANTHENOL\NIACINAMIDE\PYRIDOXINE HYDROCHLORIDE\RIBOFLAVIN 5^-PHOSPHATE SODIUM\THIAMINE HYDROCHLORIDE\VITAMIN B COMPLEX
  9. SENOKOT-S (SENNOSIDES/DOCUSATE SODIUM) [Concomitant]
  10. CALCIUM + VIT D (CALCIUM CARBONATE/VITAMIN D3) [Concomitant]
  11. PATANOL (OLOPATADINE HCL) [Concomitant]
  12. HARVONI [Suspect]
     Active Substance: LEDIPASVIR\SOFOSBUVIR
     Indication: HEPATITIS C
     Route: 048
     Dates: start: 2015, end: 20150513
  13. FENTANYL. [Concomitant]
     Active Substance: FENTANYL

REACTIONS (2)
  - Dehydration [None]
  - Hypercalcaemia [None]

NARRATIVE: CASE EVENT DATE: 20150420
